FAERS Safety Report 5318312-6 (Version None)
Quarter: 2007Q2

REPORT INFORMATION
  Report Type: 
  Country: None (occurrence: None)
  Receive Date: 20070507
  Receipt Date: 20070425
  Transmission Date: 20071010
  Serious: Yes (Other)
  Sender: FDA-Public Use
  Company Number: JP-SANOFI-SYNTHELABO-A01200700828

PATIENT
  Age: 1040 Month
  Sex: Female

DRUGS (16)
  1. MYSLEE [Suspect]
     Indication: INSOMNIA
     Route: 048
     Dates: start: 20060509, end: 20060714
  2. MYSLEE [Suspect]
     Route: 048
     Dates: start: 20070107, end: 20070114
  3. RIZE [Concomitant]
     Indication: TREMOR
     Dosage: 20 MG
     Route: 048
  4. LOPRESSOR [Concomitant]
     Indication: CARDIAC FAILURE
     Dosage: 10 MG
     Route: 048
  5. ROCALTROL [Concomitant]
     Indication: OSTEOPOROSIS
     Dosage: 0.25 MCG
     Route: 048
  6. MEDROL [Concomitant]
     Indication: RHEUMATOID ARTHRITIS
     Dosage: 2 MG
     Route: 048
  7. ZYLORYC [Concomitant]
     Indication: HYPERURICAEMIA
     Dosage: 100 MG
     Route: 048
  8. PERINDOPRIL ERBUMINE [Concomitant]
     Indication: HYPERTENSION
     Dosage: 4 MG
     Route: 048
  9. APLACE [Concomitant]
     Indication: GASTROENTERITIS
     Dosage: 200 MG
     Route: 048
  10. ACINON [Concomitant]
     Indication: GASTROENTERITIS
     Dosage: 150 MG
     Route: 048
  11. DIGOXIN [Concomitant]
     Indication: CARDIAC FAILURE
     Dosage: 0.125 MG
     Route: 048
  12. LASIX [Concomitant]
     Indication: CARDIAC FAILURE
     Dosage: 40 MG
     Route: 048
  13. GANATON [Concomitant]
     Indication: GASTROENTERITIS
     Dosage: 100 MG
     Route: 048
  14. EPADEL S [Concomitant]
     Indication: HYPERLIPIDAEMIA
     Dosage: 1800 MG
     Route: 048
  15. ASPARA-CA [Concomitant]
     Indication: OSTEOPOROSIS
     Dosage: 400 MG
     Route: 048
  16. WARFARIN SODIUM [Concomitant]
     Indication: ATRIAL FIBRILLATION
     Dosage: 1.5 MG
     Route: 048

REACTIONS (2)
  - AMNESIA [None]
  - DELIRIUM [None]
